FAERS Safety Report 9518949 (Version 1)
Quarter: 2013Q1

REPORT INFORMATION
  Report Type: Spontaneous
  Country: US (occurrence: None)
  Receive Date: 20130305
  Receipt Date: 20130305
  Transmission Date: 20140127
  Serious: Yes (Other)
  Sender: FDA-Public Use
  Company Number: 163-21880-11061910

PATIENT
  Age: 57 Year
  Sex: Female
  Weight: 85.59 kg

DRUGS (17)
  1. REVLIMID (LENALIDOMIDE) (CAPSULES) [Suspect]
     Indication: PLASMA CELL MYELOMA
     Dosage: 25 MG, 1 IN 1 D, PO
     Route: 048
     Dates: start: 20100519
  2. XYZAL (LEVOCETIRIZINE DIHYDROCHLORIDE) (UNKNOWN) [Concomitant]
  3. FAMCICLOVIR (FAMCICLOVIR) (UNKNOWN) [Concomitant]
  4. PAROXETINE (PAROXETIN) (UNKNOWN) [Concomitant]
  5. AMLODIPINE-BENAZEPRIL (AMLODIPINE BESYLATE W/BENAZEPRIL HYDROCHLOR.) (UNKNOWN) [Concomitant]
  6. ZANTAC (RANITIDINE HYDROCHLORIDE) (UNKNOWN) [Concomitant]
  7. METOPROLOL (METOPROLOL) (UNKNOWN) [Concomitant]
  8. OXYCODONE (OXYCODONE) (UNKNOWN) (OXYCODONE) [Concomitant]
  9. CALCIUM (CALCIUM) (UNKNOWN) [Concomitant]
  10. VITAMIN D (ERGOCALCIFEROL) (UNKNOWN) [Concomitant]
  11. VITAMIN E (TOCOPHEROL) (UNKNOWN) [Concomitant]
  12. IRON [Concomitant]
  13. ASPIRIN (ACETYLSALICYLIC ACID) (UNKNOWN) (ACETYLSALICYLIC ACID) [Concomitant]
  14. TOPROL (METOPROLOL SUCCINATE) (UNKNOWN) [Concomitant]
  15. VELCADE [Concomitant]
  16. DEXAMETHASONE (DEXAMETHASONE) (UNKNOWN) [Concomitant]
  17. INTEGRA (INTEGRA) (UNKNOWN) [Concomitant]

REACTIONS (12)
  - Dry eye [None]
  - Drug prescribing error [None]
  - Chest pain [None]
  - Back pain [None]
  - Diarrhoea [None]
  - Dehydration [None]
  - Electrolyte imbalance [None]
  - Hypokalaemia [None]
  - Skin discolouration [None]
  - Rash [None]
  - Anaemia [None]
  - Fatigue [None]
